FAERS Safety Report 22170648 (Version 9)
Quarter: 2023Q2

REPORT INFORMATION
  Report Type: Report from Study
  Country: US (occurrence: US)
  Receive Date: 20230404
  Receipt Date: 20230623
  Transmission Date: 20230722
  Serious: Yes (Hospitalization)
  Sender: FDA-Public Use
  Company Number: US-002147023-NVSC2023US071834

PATIENT
  Age: 54 Year
  Sex: Male

DRUGS (9)
  1. KESIMPTA [Suspect]
     Active Substance: OFATUMUMAB
     Indication: Multiple sclerosis
     Dosage: 20 MG, QW (WEEK 0, 1, 2)
     Route: 058
     Dates: start: 20230324
  2. KESIMPTA [Suspect]
     Active Substance: OFATUMUMAB
     Dosage: UNK
     Route: 058
     Dates: start: 20230426
  3. KESIMPTA [Suspect]
     Active Substance: OFATUMUMAB
     Dosage: UNK
     Route: 058
     Dates: start: 20230510
  4. KESIMPTA [Suspect]
     Active Substance: OFATUMUMAB
     Dosage: UNK, TID
     Route: 058
  5. LOSARTAN [Concomitant]
     Active Substance: LOSARTAN
     Indication: Product used for unknown indication
     Dosage: 100 MG, QD
     Route: 065
  6. CYANOCOBALAMIN [Concomitant]
     Active Substance: CYANOCOBALAMIN
     Indication: Product used for unknown indication
     Dosage: 500 IU, QD
     Route: 065
  7. POTASSIUM [Concomitant]
     Active Substance: POTASSIUM
     Indication: Product used for unknown indication
     Dosage: UNK, QD
     Route: 065
  8. VITAMIN D NOS [Concomitant]
     Active Substance: VITAMIN D NOS
     Indication: Product used for unknown indication
     Dosage: UNK, QD
     Route: 065
  9. LOSARTAN AND HYDROCHLOROTHIAZIDE [Concomitant]
     Active Substance: HYDROCHLOROTHIAZIDE\LOSARTAN POTASSIUM
     Indication: Product used for unknown indication
     Dosage: 100 MG, QD (25-100 MG)
     Route: 065

REACTIONS (9)
  - Musculoskeletal disorder [Recovered/Resolved]
  - Fall [Unknown]
  - Malaise [Recovered/Resolved]
  - Gait inability [Recovered/Resolved]
  - Feeling abnormal [Unknown]
  - Gait disturbance [Unknown]
  - Mobility decreased [Unknown]
  - Device issue [Unknown]
  - Device colour issue [Unknown]

NARRATIVE: CASE EVENT DATE: 20230301
